FAERS Safety Report 15624887 (Version 2)
Quarter: 2019Q1

REPORT INFORMATION
  Report Type: Spontaneous
  Country: LV (occurrence: LV)
  Receive Date: 20181116
  Receipt Date: 20190110
  Transmission Date: 20190417
  Serious: Yes (Death)
  Sender: FDA-Public Use
  Company Number: LV-ROCHE-2212742

PATIENT
  Age: 69 Year
  Sex: Female
  Weight: 80 kg

DRUGS (3)
  1. ZELBORAF [Suspect]
     Active Substance: VEMURAFENIB
     Indication: METASTATIC MALIGNANT MELANOMA
     Route: 048
     Dates: start: 20181008, end: 20181102
  2. COTELLIC [Suspect]
     Active Substance: COBIMETINIB
     Indication: METASTATIC MALIGNANT MELANOMA
     Route: 048
     Dates: start: 20181008, end: 20181102
  3. ROFERON-A [Concomitant]
     Active Substance: INTERFERON ALFA-2A
     Route: 065
     Dates: start: 20151022

REACTIONS (3)
  - Nausea [Fatal]
  - Abdominal pain upper [Fatal]
  - Vomiting [Fatal]

NARRATIVE: CASE EVENT DATE: 20181029
